FAERS Safety Report 5950186 (Version 24)
Quarter: 2014Q1

REPORT INFORMATION
  Report Type: Spontaneous
  Country: US (occurrence: US)
  Receive Date: 20051223
  Receipt Date: 20140206
  Transmission Date: 20141002
  Serious: Yes (Hospitalization, Other)
  Sender: FDA-Public Use
  Company Number: PHEH2005US13440

PATIENT
  Age: 47 Year
  Sex: Female
  Weight: 72.56 kg

DRUGS (37)
  1. ZOMETA [Suspect]
     Dosage: 4 MG, QMO
     Route: 042
     Dates: start: 2004, end: 20060418
  2. COUMADIN ^BOOTS^ [Suspect]
     Dosage: 5 MG, AS DIRECTED
     Route: 048
  3. NICOTINE [Suspect]
  4. CARBOPLATIN [Concomitant]
  5. AMBIEN [Concomitant]
     Dosage: 10 MG, QHS
     Route: 048
  6. FEMARA [Concomitant]
     Dosage: 2.5 MG, QD
     Route: 048
  7. HYDROCHLOROTHIAZIDE [Concomitant]
     Dosage: 25 MG, QD
     Route: 048
  8. LEVAQUIN [Concomitant]
     Dosage: 500 MG, QD
     Route: 048
  9. HEXADROL [Concomitant]
  10. ARANESP [Concomitant]
  11. NEULASTA [Concomitant]
  12. KYTRIL [Concomitant]
  13. TAXOTERE [Concomitant]
  14. METHOTREXATE [Concomitant]
  15. PACLITAXEL [Concomitant]
  16. HYDROCORTISONE [Concomitant]
  17. ADRIAMYCIN [Concomitant]
  18. LEUCOVORIN [Concomitant]
  19. 5-FU [Concomitant]
  20. GRANISETRON [Concomitant]
  21. CIMETIDINE [Concomitant]
  22. PROMETHAZINE [Concomitant]
     Indication: NAUSEA
  23. CLINDAMYCIN [Concomitant]
  24. ZOFRAN [Concomitant]
  25. HERCEPTIN [Concomitant]
  26. CEFTAZIDIME [Concomitant]
  27. VANCOMYCIN [Concomitant]
  28. ZYMAR [Concomitant]
  29. CYTOXAN [Concomitant]
  30. ANZEMET [Concomitant]
  31. MAXITROL [Concomitant]
  32. MURO 128 [Concomitant]
  33. WARFARIN SODIUM [Concomitant]
     Dosage: 4 MG, UNK
  34. IRON [Concomitant]
     Dosage: 325 MG, QD
  35. TAXOL [Concomitant]
     Dosage: 6 MG, UNK
  36. AREDIA [Suspect]
     Route: 042
     Dates: start: 2002, end: 2004
  37. AREDIA [Suspect]
     Dosage: 90 MG, QMO
     Route: 042
     Dates: end: 20050809

REACTIONS (126)
  - Rectal cancer [Unknown]
  - Second primary malignancy [Unknown]
  - Asthma [Unknown]
  - Seasonal allergy [Unknown]
  - Tricuspid valve incompetence [Unknown]
  - Aortic valve incompetence [Unknown]
  - Collateral circulation [Unknown]
  - Facet joint syndrome [Unknown]
  - Pulmonary hypertension [Unknown]
  - Lymphadenopathy [Unknown]
  - Left ventricular dysfunction [Unknown]
  - Tachycardia [Unknown]
  - Intervertebral disc protrusion [Unknown]
  - Osteonecrosis of jaw [Not Recovered/Not Resolved]
  - General physical health deterioration [Unknown]
  - Pain [Unknown]
  - Anxiety [Unknown]
  - Decreased interest [Unknown]
  - Osteomyelitis [Unknown]
  - Abscess [Recovering/Resolving]
  - Post-traumatic osteoporosis [Unknown]
  - Neutropenia [Unknown]
  - Anaemia of malignant disease [Unknown]
  - Claustrophobia [Unknown]
  - Device occlusion [Unknown]
  - Axillary mass [Unknown]
  - Pericardial effusion [Recovered/Resolved]
  - Mitral valve incompetence [Unknown]
  - Local swelling [Unknown]
  - Cellulitis [Unknown]
  - Toxicity to various agents [Unknown]
  - Coagulopathy [Unknown]
  - Mouth haemorrhage [Unknown]
  - Gingival bleeding [Unknown]
  - Primary sequestrum [Unknown]
  - Anaemia [Unknown]
  - Dental caries [Unknown]
  - Lymphatic system neoplasm [Unknown]
  - Night sweats [Unknown]
  - Epistaxis [Unknown]
  - Pulmonary embolism [Unknown]
  - Lymphoedema [Unknown]
  - Osteoradionecrosis [Unknown]
  - Oral cavity fistula [Unknown]
  - Joint dislocation [Unknown]
  - Spinal osteoarthritis [Unknown]
  - Cardiomegaly [Unknown]
  - Weight increased [Unknown]
  - Sinus tachycardia [Unknown]
  - Cataract [Unknown]
  - Tobacco abuse [Unknown]
  - Thrombocytopenia [Unknown]
  - Sinusitis [Unknown]
  - Otitis media [Unknown]
  - Bronchitis [Unknown]
  - Neoplasm progression [Unknown]
  - Bone lesion [Unknown]
  - Metastases to liver [Unknown]
  - Metastases to lung [Unknown]
  - Prothrombin time prolonged [Unknown]
  - Ligament injury [Unknown]
  - Essential hypertension [Unknown]
  - Gastrooesophageal reflux disease [Unknown]
  - Platelet count increased [Unknown]
  - Blood glucose increased [Unknown]
  - Blood creatinine increased [Unknown]
  - Hepatic steatosis [Unknown]
  - Hiatus hernia [Unknown]
  - Diverticulum intestinal [Unknown]
  - Gallbladder disorder [Unknown]
  - Superior vena cava syndrome [Unknown]
  - Hot flush [Unknown]
  - Insomnia [Unknown]
  - Fistula discharge [Unknown]
  - Pathological fracture [Unknown]
  - Increased tendency to bruise [Unknown]
  - Thrombosis [Unknown]
  - Exposed bone in jaw [Unknown]
  - Oral infection [Unknown]
  - Urinary tract infection [Unknown]
  - Swelling [Unknown]
  - Sinus disorder [Unknown]
  - Left atrial dilatation [Unknown]
  - Tachyarrhythmia [Unknown]
  - Osteoporosis [Unknown]
  - Eye injury [Unknown]
  - Hepatitis B [Unknown]
  - Swelling face [Unknown]
  - Wound secretion [Unknown]
  - Aortic arteriosclerosis [Unknown]
  - Breast cancer [Unknown]
  - Malignant neoplasm progression [Unknown]
  - Tooth fracture [Unknown]
  - Pain in jaw [Unknown]
  - Osteosclerosis [Unknown]
  - Osteolysis [Unknown]
  - Dry skin [Unknown]
  - Varicose veins of abdominal wall [Unknown]
  - Skin hypertrophy [Unknown]
  - Vascular compression [Unknown]
  - Deep vein thrombosis [Unknown]
  - Goitre [Unknown]
  - Soft tissue mass [Unknown]
  - Neuropathy peripheral [Unknown]
  - Biliary dilatation [Unknown]
  - Hyperbilirubinaemia [Unknown]
  - Bile duct obstruction [Unknown]
  - Cholecystitis [Unknown]
  - Leukocytosis [Unknown]
  - Tongue disorder [Unknown]
  - Pruritus [Unknown]
  - Pyrexia [Unknown]
  - Jaundice [Unknown]
  - Acquired diaphragmatic eventration [Unknown]
  - Gallbladder enlargement [Unknown]
  - Hypokalaemia [Unknown]
  - Hyponatraemia [Unknown]
  - Arthritis [Unknown]
  - Abdominal discomfort [Unknown]
  - Fatigue [Unknown]
  - Nausea [Unknown]
  - Vomiting [Unknown]
  - Bone loss [Unknown]
  - Bone atrophy [Unknown]
  - Bile duct stone [Unknown]
  - Abdominal tenderness [Unknown]
